FAERS Safety Report 13674878 (Version 1)
Quarter: 2017Q2

REPORT INFORMATION
  Report Type: Spontaneous
  Country: US (occurrence: US)
  Receive Date: 20170621
  Receipt Date: 20170621
  Transmission Date: 20170830
  Serious: No
  Sender: FDA-Public Use
  Company Number: US-PERRIGO-16US018567

PATIENT
  Age: 68 Year
  Sex: Male
  Weight: 98.87 kg

DRUGS (5)
  1. RANITIDINE HYDROCHLORIDE. [Suspect]
     Active Substance: RANITIDINE HYDROCHLORIDE
     Indication: DYSPEPSIA
     Dosage: 150 MG, QD OR BID
     Route: 048
     Dates: start: 20160718
  2. XELODA [Concomitant]
     Active Substance: CAPECITABINE
     Indication: PROSTATE CANCER
     Dosage: UNK
     Route: 065
     Dates: start: 2015
  3. XELODA [Concomitant]
     Active Substance: CAPECITABINE
     Indication: BONE CANCER
  4. MORPHINE [Concomitant]
     Active Substance: MORPHINE
     Indication: PAIN
     Dosage: UNK
     Route: 048
  5. CLONAZEPAM. [Concomitant]
     Active Substance: CLONAZEPAM
     Indication: ANXIETY
     Dosage: UNK
     Route: 048

REACTIONS (1)
  - Constipation [Unknown]

NARRATIVE: CASE EVENT DATE: 20160720
